FAERS Safety Report 7779187-9 (Version None)
Quarter: 2011Q3

REPORT INFORMATION
  Report Type: 
  Country: None (occurrence: None)
  Receive Date: 20110926
  Receipt Date: 20110921
  Transmission Date: 20111222
  Serious: Yes (Death)
  Sender: FDA-Public Use
  Company Number: US-ASTRAZENECA-2011SE56766

PATIENT
  Sex: Female

DRUGS (5)
  1. SEROQUEL [Suspect]
     Indication: INSOMNIA
     Dosage: ONE DOSE OF 300 MG
     Route: 048
  2. PROTON PUMP INHIBITOR (UNKNOWN WHICH SPECIFIC AGENT) [Concomitant]
     Indication: ULCER HAEMORRHAGE
  3. LYRICA [Concomitant]
     Indication: PAIN
  4. NARCOTICS  (UNKNOWN WHICH SPECIFIC AGENT) [Concomitant]
     Indication: PAIN
  5. BENZODIAZEPANES  (UNKNOWN WHICH SPECIFIC AGENT) [Concomitant]

REACTIONS (1)
  - DEATH [None]
